FAERS Safety Report 15506610 (Version 2)
Quarter: 2018Q4

REPORT INFORMATION
  Report Type: Report from Study
  Country: GR (occurrence: GR)
  Receive Date: 20181016
  Receipt Date: 20181026
  Transmission Date: 20190205
  Serious: Yes (Other)
  Sender: FDA-Public Use
  Company Number: GR-ROCHE-2063584

PATIENT
  Age: 46 Year
  Sex: Female
  Weight: 55 kg

DRUGS (7)
  1. COBIMETINIB. [Suspect]
     Active Substance: COBIMETINIB
     Indication: METASTATIC MALIGNANT MELANOMA
     Dosage: 60 MG (THREE, 20 MG TABLETS) ON DAYS 1 TO 21 ?DATE OF MOST RECENT DOSE PRIOR TO SAE ONSET: 18/JAN/20
     Route: 048
     Dates: start: 20171214
  2. PONSTAN [Concomitant]
     Active Substance: MEFENAMIC ACID
     Indication: OEDEMA
     Route: 065
     Dates: start: 20171218, end: 20171222
  3. BLINDED ATEZOLIZUMAB [Suspect]
     Active Substance: ATEZOLIZUMAB
     Indication: METASTATIC MALIGNANT MELANOMA
     Dosage: DATE OF MOST RECENT DOSE PRIOR TO AE ONSET: 11/JAN/2018
     Route: 042
     Dates: start: 20180111
  4. PONSTAN [Concomitant]
     Active Substance: MEFENAMIC ACID
     Indication: PAIN
  5. CLEXANE [Concomitant]
     Active Substance: ENOXAPARIN SODIUM
     Indication: OEDEMA
     Route: 065
     Dates: start: 20171227, end: 20180817
  6. VEMURAFENIB. [Suspect]
     Active Substance: VEMURAFENIB
     Indication: METASTATIC MALIGNANT MELANOMA
     Dosage: ORAL VEMURAFENIB 4 DOSAGE FORM (DF) TWICE A DAY, ON DAY 1 TO 28 OF EACH 28-DAY CYCLE (DOSE BLINDED P
     Route: 048
     Dates: start: 20171214
  7. CLEXANE [Concomitant]
     Active Substance: ENOXAPARIN SODIUM
     Indication: PAIN

REACTIONS (1)
  - Drug-induced liver injury [Recovered/Resolved]

NARRATIVE: CASE EVENT DATE: 20180115
